FAERS Safety Report 22394665 (Version 1)
Quarter: 2023Q2

REPORT INFORMATION
  Report Type: Spontaneous
  Country: CN (occurrence: None)
  Receive Date: 20230601
  Receipt Date: 20230601
  Transmission Date: 20230722
  Serious: Yes (Other)
  Sender: FDA-Public Use
  Company Number: CN-ROCHE-3359000

PATIENT
  Age: 38 Year
  Sex: Female

DRUGS (11)
  1. XELODA [Suspect]
     Active Substance: CAPECITABINE
     Indication: Adenocarcinoma
     Dosage: Q21D
     Route: 048
     Dates: start: 201805, end: 201904
  2. XELODA [Suspect]
     Active Substance: CAPECITABINE
     Route: 065
     Dates: start: 201909, end: 202005
  3. XELODA [Suspect]
     Active Substance: CAPECITABINE
     Dosage: Q28D
     Route: 048
     Dates: start: 202009
  4. AVASTIN [Suspect]
     Active Substance: BEVACIZUMAB
     Indication: Adenocarcinoma
     Route: 065
     Dates: start: 201905
  5. AVASTIN [Suspect]
     Active Substance: BEVACIZUMAB
     Route: 065
     Dates: start: 201905, end: 201908
  6. AVASTIN [Suspect]
     Active Substance: BEVACIZUMAB
     Route: 065
     Dates: start: 201909
  7. OXALIPLATIN [Concomitant]
     Active Substance: OXALIPLATIN
  8. RALTITREXED [Concomitant]
     Active Substance: RALTITREXED
  9. IRINOTECAN [Concomitant]
     Active Substance: IRINOTECAN
  10. REGORAFENIB [Concomitant]
     Active Substance: REGORAFENIB
  11. SINTILIMAB [Concomitant]
     Active Substance: SINTILIMAB

REACTIONS (8)
  - Palmar-plantar erythrodysaesthesia syndrome [Unknown]
  - Hyperpyrexia [Unknown]
  - Hepatic function abnormal [Unknown]
  - Asthenia [Unknown]
  - Myalgia [Unknown]
  - Rash [Unknown]
  - Alopecia [Unknown]
  - Febrile neutropenia [Unknown]

NARRATIVE: CASE EVENT DATE: 20190101
